FAERS Safety Report 9324559 (Version 3)
Quarter: 2014Q1

REPORT INFORMATION
  Report Type: Spontaneous
  Country: US (occurrence: US)
  Receive Date: 20130603
  Receipt Date: 20140306
  Transmission Date: 20141002
  Serious: Yes (Hospitalization)
  Sender: FDA-Public Use
  Company Number: US-B.I. PHARMACEUTICALS,INC./RIDGEFIELD-2013-BI-15314BP

PATIENT
  Sex: Male
  Weight: 99.79 kg

DRUGS (12)
  1. PRADAXA [Suspect]
     Indication: ATRIAL FIBRILLATION
     Dosage: 300 MG
     Route: 048
     Dates: start: 20110909, end: 20120114
  2. HYZAAR [Concomitant]
     Route: 048
  3. METOPROLOL TARTRATE [Concomitant]
     Dosage: 100 MG
     Route: 048
  4. RANITIDINE [Concomitant]
     Dosage: 150 MG
     Route: 048
  5. BYETTA [Concomitant]
     Route: 051
  6. METFORMIN [Concomitant]
     Dosage: 2000 MG
     Route: 048
  7. GLIPIZIDE [Concomitant]
     Dosage: 10 MG
     Route: 048
  8. TAMSULOSIN [Concomitant]
     Dosage: 0.4 MG
     Route: 048
  9. ASPIRIN [Concomitant]
     Indication: ATRIAL FIBRILLATION
     Dosage: 325 MG
     Route: 048
     Dates: start: 201108, end: 20120114
  10. MULTAQ [Concomitant]
     Dosage: 800 MG
     Route: 048
  11. CINNAMON [Concomitant]
     Route: 048
  12. OMEGA-3 FATTY ACIDS [Concomitant]
     Dosage: 6 G
     Route: 048

REACTIONS (2)
  - Lower gastrointestinal haemorrhage [Unknown]
  - Anaemia [Unknown]
